FAERS Safety Report 12388060 (Version 1)
Quarter: 2016Q2

REPORT INFORMATION
  Report Type: Other
  Country: IL (occurrence: IL)
  Receive Date: 20160520
  Receipt Date: 20160520
  Transmission Date: 20160815
  Serious: Yes (Hospitalization)
  Sender: FDA-Public Use
  Company Number: IL-TARO PHARMACEUTICALS USA.,INC-2016SUN00266

PATIENT
  Age: 71 Year
  Sex: Male

DRUGS (8)
  1. ELATROLET [Concomitant]
     Active Substance: AMITRIPTYLINE HYDROCHLORIDE
     Dosage: 10 MG, BID
     Route: 048
  2. LANTON [Concomitant]
     Dosage: 30 MG, BID
     Route: 048
  3. BROTIZOLAM-TEVA [Concomitant]
     Dosage: 0.25 MG, UNK
     Route: 048
  4. CLEXANE [Suspect]
     Active Substance: ENOXAPARIN SODIUM
     Indication: PROPHYLAXIS
     Dosage: UNK
     Route: 065
  5. LYRICA [Concomitant]
     Active Substance: PREGABALIN
     Dosage: 75 MG, BID
     Route: 048
  6. LOSARDEX PLUS [Concomitant]
     Dosage: 50MG/12.5MG, ONCE DAILY
     Route: 048
  7. COUMADIN [Suspect]
     Active Substance: WARFARIN SODIUM
     Indication: DEEP VEIN THROMBOSIS
     Dosage: UNK
     Route: 048
     Dates: start: 20160117, end: 20160318
  8. XATRAL XL [Concomitant]
     Active Substance: ALFUZOSIN HYDROCHLORIDE
     Dosage: 10 MG, BID
     Route: 048

REACTIONS (3)
  - Transient ischaemic attack [Recovering/Resolving]
  - Subdural haematoma [Recovering/Resolving]
  - International normalised ratio increased [Recovering/Resolving]
